FAERS Safety Report 8972339 (Version 1)
Quarter: 2012Q4

REPORT INFORMATION
  Report Type: 
  Country: JP (occurrence: JP)
  Receive Date: 20121219
  Receipt Date: 20121219
  Transmission Date: 20130627
  Serious: Yes (Other)
  Sender: FDA-Public Use
  Company Number: JP-TEVA-339028USA

PATIENT
  Age: 65 Year
  Sex: Female

DRUGS (2)
  1. BENDAMUSTINE [Suspect]
     Indication: B-CELL LYMPHOMA
     Dosage: UID/QD
     Route: 042
     Dates: start: 20110317, end: 20110318
  2. GRANISETRON HYDROCHLORIDE [Concomitant]
     Dates: start: 20110318

REACTIONS (1)
  - Angiopathy [Recovered/Resolved]
